FAERS Safety Report 7997703-9 (Version None)
Quarter: 2011Q4

REPORT INFORMATION
  Report Type: 
  Country: None (occurrence: None)
  Receive Date: 20111221
  Receipt Date: 20111007
  Transmission Date: 20120403
  Serious: Yes (Life-Threatening, Hospitalization)
  Sender: FDA-Public Use
  Company Number: BR-ROCHE-671206

PATIENT
  Sex: Male
  Weight: 58.5 kg

DRUGS (12)
  1. AVASTIN [Suspect]
     Indication: RENAL CELL CARCINOMA
     Route: 042
     Dates: start: 20081030, end: 20091030
  2. TYLEX (BRAZIL) [Concomitant]
     Dates: start: 20100601, end: 20100715
  3. INTERFERON ALFA [Suspect]
     Indication: RENAL CELL CARCINOMA
     Dosage: DOSE AS REPORTED: 3 MU
     Route: 058
     Dates: start: 20081030, end: 20091030
  4. INTERFERON ALFA [Suspect]
     Route: 058
  5. DICLOFENAC SODIUM [Concomitant]
     Indication: PAIN
     Dates: start: 20100702, end: 20100715
  6. METOCLOPRAMIDE [Concomitant]
     Indication: PROPHYLAXIS OF NAUSEA AND VOMITING
     Dates: start: 20100729, end: 20100803
  7. ANALGESIC NOS [Concomitant]
  8. TRAMADOL HCL [Concomitant]
     Indication: PAIN
  9. MORPHINE [Concomitant]
  10. LACTULOSE [Concomitant]
     Indication: CONSTIPATION
     Dates: start: 20100804, end: 20100804
  11. ANALGESIC NOS [Concomitant]
     Indication: PAIN
  12. DIPIRONA MAGNESICA [Concomitant]

REACTIONS (3)
  - DYSPNOEA [None]
  - PULMONARY EMBOLISM [None]
  - ANAEMIA [None]
